FAERS Safety Report 5729406-5 (Version None)
Quarter: 2008Q2

REPORT INFORMATION
  Report Type: 
  Country: None (occurrence: None)
  Receive Date: 20080506
  Receipt Date: 20080424
  Transmission Date: 20081010
  Serious: Yes (Other)
  Sender: FDA-Public Use
  Company Number: FR-PFIZER INC-2008037592

PATIENT
  Sex: Female

DRUGS (3)
  1. CHANTIX [Suspect]
     Indication: SMOKING CESSATION THERAPY
     Dates: start: 20080125, end: 20080101
  2. ESTRADIOL HEMIHYDRATE [Concomitant]
  3. GESTODENE [Concomitant]

REACTIONS (2)
  - HOMICIDAL IDEATION [None]
  - SUICIDE ATTEMPT [None]
